FAERS Safety Report 8348848-5 (Version None)
Quarter: 2012Q2

REPORT INFORMATION
  Report Type: 
  Country: None (occurrence: None)
  Receive Date: 20120508
  Receipt Date: 20120423
  Transmission Date: 20120825
  Serious: Yes (Other)
  Sender: FDA-Public Use
  Company Number: JPI-P-007326

PATIENT
  Age: 26 Year
  Sex: Male
  Weight: 68.0396 kg

DRUGS (4)
  1. METHYLPHENIDATE HCL [Concomitant]
  2. TOPIRAMATE [Concomitant]
  3. XYREM [Suspect]
     Indication: NARCOLEPSY
     Dosage: (2 IN 1 D), ORAL, 7.5 GM (3.75 GM, 2 IN 1 D), ORAL
     Route: 048
     Dates: start: 20090515, end: 20090625
  4. XYREM [Suspect]
     Indication: NARCOLEPSY
     Dosage: (2 IN 1 D), ORAL, 7.5 GM (3.75 GM, 2 IN 1 D), ORAL
     Route: 048
     Dates: start: 20070101

REACTIONS (14)
  - FATIGUE [None]
  - DYSARTHRIA [None]
  - DEHYDRATION [None]
  - APNOEA [None]
  - JAW DISORDER [None]
  - INSOMNIA [None]
  - UNRESPONSIVE TO STIMULI [None]
  - WEIGHT INCREASED [None]
  - SNORING [None]
  - GRAND MAL CONVULSION [None]
  - CLUMSINESS [None]
  - SOMNOLENCE [None]
  - CONVULSION [None]
  - MASTICATION DISORDER [None]
